FAERS Safety Report 4785836-X (Version None)
Quarter: 2005Q3

REPORT INFORMATION
  Report Type: 
  Country: None (occurrence: None)
  Receive Date: 20050929
  Receipt Date: 20050920
  Transmission Date: 20060218
  Serious: Yes (Death)
  Sender: FDA-Public Use
  Company Number: US-2005-019576

PATIENT
  Age: 41 Year
  Sex: Female

DRUGS (1)
  1. BETASERON (INTERFERON BEA - 1B)INJECTION, 250?G [Suspect]
     Indication: MULTIPLE SCLEROSIS
     Dosage: 8 MIU, EVERY 2D, SUBCUTANEOUS
     Route: 058
     Dates: start: 20050318, end: 20050910

REACTIONS (1)
  - CARDIAC DISORDER [None]
